FAERS Safety Report 13871953 (Version 1)
Quarter: 2017Q3

REPORT INFORMATION
  Report Type: Spontaneous
  Country: CZ (occurrence: CZ)
  Receive Date: 20170816
  Receipt Date: 20170816
  Transmission Date: 20171127
  Serious: Yes (Hospitalization, Disabling, Other)
  Sender: FDA-Public Use
  Company Number: CZ-MERCK KGAA-2024674

PATIENT
  Age: 49 Year
  Sex: Female

DRUGS (14)
  1. PANGROL [Suspect]
     Active Substance: PANCRELIPASE
     Dates: start: 2013
  2. PANZYNORM [Suspect]
     Active Substance: PANCRELIPASE
  3. LETROX [Concomitant]
     Active Substance: LEVOTHYROXINE SODIUM
  4. NOVOTHYROX [Suspect]
     Active Substance: LEVOTHYROXINE SODIUM
     Indication: THYROID DISORDER
     Dates: start: 200204, end: 2007
  5. VALDOXAN [Suspect]
     Active Substance: AGOMELATINE
     Dates: start: 2013
  6. PROSULPIN [Suspect]
     Active Substance: SULPIRIDE
  7. FRISIUM [Suspect]
     Active Substance: CLOBAZAM
  8. HELICID [Suspect]
     Active Substance: OMEPRAZOLE
     Dates: start: 201311
  9. PANCREOLAN FORTE [Suspect]
     Active Substance: DIASTASE\LIPASE\PROTEASE
  10. VERAL (VERAPAMIL HYDROCHLORIDE) [Suspect]
     Active Substance: VERAPAMIL HYDROCHLORIDE
  11. DALACIN [Suspect]
     Active Substance: CLINDAMYCIN
     Dates: start: 2012, end: 2012
  12. AMITRIPTYLINE HYDROCHLORIDE. [Suspect]
     Active Substance: AMITRIPTYLINE HYDROCHLORIDE
  13. MIABENE [Concomitant]
  14. ZYMASE (DIASTASE\LIPASE\PROTEASE) [Suspect]
     Active Substance: DIASTASE\LIPASE\PROTEASE

REACTIONS (8)
  - Abdominal pain upper [None]
  - Feeding disorder [None]
  - Abnormal dreams [None]
  - Abnormal loss of weight [None]
  - Gastrointestinal disorder [None]
  - Abdominal pain lower [None]
  - Lactose intolerance [None]
  - Flatulence [None]

NARRATIVE: CASE EVENT DATE: 201311
